FAERS Safety Report 22289986 (Version 1)
Quarter: 2023Q2

REPORT INFORMATION
  Report Type: Spontaneous
  Country: US (occurrence: US)
  Receive Date: 20230505
  Receipt Date: 20230505
  Transmission Date: 20230722
  Serious: Yes (Other)
  Sender: FDA-Public Use
  Company Number: US-002147023-NVSC2023US103001

PATIENT
  Sex: Male

DRUGS (2)
  1. DIFLUPREDNATE [Suspect]
     Active Substance: DIFLUPREDNATE
     Indication: Product used for unknown indication
     Dosage: UNK (OPHTHALMIC EMULSION)
     Route: 065
  2. DUREZOL [Suspect]
     Active Substance: DIFLUPREDNATE
     Indication: Glaucoma
     Dosage: UNK
     Route: 065

REACTIONS (4)
  - Blindness [Unknown]
  - Product availability issue [Unknown]
  - Intraocular pressure decreased [Unknown]
  - Product substitution issue [Unknown]
